FAERS Safety Report 6896736-3 (Version None)
Quarter: 2010Q3

REPORT INFORMATION
  Report Type: 
  Country: None (occurrence: None)
  Receive Date: 20100802
  Receipt Date: 20070130
  Transmission Date: 20110219
  Serious: No
  Sender: FDA-Public Use
  Company Number: US-PFIZER INC-2007008764

PATIENT
  Sex: Female
  Weight: 45.36 kg

DRUGS (6)
  1. LYRICA [Suspect]
     Indication: DIABETIC NEUROPATHY
     Dates: start: 20070130
  2. LYRICA [Suspect]
     Indication: PAIN
  3. AMBIEN [Concomitant]
  4. LORAZEPAM [Concomitant]
  5. BETHANECHOL [Concomitant]
  6. ALL OTHER THERAPEUTIC PRODUCTS [Concomitant]

REACTIONS (2)
  - DIZZINESS [None]
  - TREMOR [None]
